FAERS Safety Report 5177776-1 (Version None)
Quarter: 2006Q4

REPORT INFORMATION
  Report Type: 
  Country: None (occurrence: None)
  Receive Date: 20061218
  Receipt Date: 20060725
  Transmission Date: 20070319
  Serious: No
  Sender: FDA-Public Use
  Company Number: US-AMGEN-KDL187727

PATIENT
  Sex: Female

DRUGS (3)
  1. ENBREL [Suspect]
     Indication: PSORIATIC ARTHROPATHY
     Route: 058
     Dates: start: 20060615
  2. ENBREL [Suspect]
     Indication: PSORIASIS
  3. AZULFIDINE [Concomitant]
     Dates: start: 19910101

REACTIONS (3)
  - CHEST DISCOMFORT [None]
  - COUGH [None]
  - RESPIRATORY TRACT CONGESTION [None]
